FAERS Safety Report 7592579-6 (Version None)
Quarter: 2011Q3

REPORT INFORMATION
  Report Type: 
  Country: None (occurrence: None)
  Receive Date: 20110706
  Receipt Date: 20110624
  Transmission Date: 20111222
  Serious: No
  Sender: FDA-Public Use
  Company Number: US-TYCO HEALTHCARE/MALLINCKRODT-T201101137

PATIENT
  Sex: Female
  Weight: 48.073 kg

DRUGS (6)
  1. SINEMET [Concomitant]
     Indication: RESTLESS LEGS SYNDROME
     Dosage: 200 MG, Q HS
  2. NEURONTIN [Concomitant]
     Indication: NEURALGIA
     Dosage: 100 MG, TID
  3. WELLBUTRIN [Concomitant]
     Indication: SMOKING CESSATION THERAPY
     Dosage: 100 MG, QD
  4. OXYCODONE/ACETAMINOPHEN [Suspect]
     Indication: PAIN
     Dosage: 1 TABLET, QID
     Route: 048
     Dates: start: 20110517, end: 20110524
  5. LIDODERM [Concomitant]
     Indication: NEURALGIA
     Dosage: 12 HOURS ON, 12 HOURS OFF
     Route: 062
  6. XANAX [Concomitant]
     Indication: INSOMNIA
     Dosage: 0.5 MG, QD PRN

REACTIONS (8)
  - WITHDRAWAL SYNDROME [None]
  - HYPERHIDROSIS [None]
  - DIZZINESS [None]
  - HEADACHE [None]
  - PRODUCT QUALITY ISSUE [None]
  - DRUG INEFFECTIVE [None]
  - PALPITATIONS [None]
  - FEELING ABNORMAL [None]
